FAERS Safety Report 6108317-X (Version None)
Quarter: 2009Q1

REPORT INFORMATION
  Report Type: 
  Country: None (occurrence: None)
  Receive Date: 20090309
  Receipt Date: 20090225
  Transmission Date: 20090719
  Serious: Yes (Hospitalization)
  Sender: FDA-Public Use
  Company Number: FR-ROCHE-617400

PATIENT
  Sex: Female

DRUGS (6)
  1. XELODA [Suspect]
     Indication: BREAST CANCER
     Route: 048
     Dates: start: 20080415, end: 20080505
  2. XELODA [Suspect]
     Route: 048
     Dates: start: 20080520, end: 20080611
  3. XELODA [Suspect]
     Route: 048
  4. TYVERB [Suspect]
     Indication: BREAST CANCER
     Route: 048
     Dates: start: 20080415, end: 20080505
  5. TYVERB [Suspect]
     Route: 048
     Dates: start: 20080520, end: 20080611
  6. TYVERB [Suspect]
     Route: 048

REACTIONS (2)
  - DIARRHOEA [None]
  - RADIATION MUCOSITIS [None]
